FAERS Safety Report 5280178-0 (Version None)
Quarter: 2007Q1

REPORT INFORMATION
  Report Type: 
  Country: None (occurrence: None)
  Receive Date: 20070326
  Receipt Date: 20070326
  Transmission Date: 20070707
  Serious: Yes (Other)
  Sender: FDA-Public Use
  Company Number: None

PATIENT
  Sex: Male
  Weight: 97.5234 kg

DRUGS (1)
  1. LIPITOR [Suspect]
     Indication: BLOOD CHOLESTEROL INCREASED
     Dosage: 10MG DAILY PO
     Route: 048
     Dates: start: 20070211, end: 20070221

REACTIONS (9)
  - ABASIA [None]
  - COORDINATION ABNORMAL [None]
  - DISORIENTATION [None]
  - DYSPNOEA [None]
  - FOOT FRACTURE [None]
  - IMPAIRED DRIVING ABILITY [None]
  - MUSCLE DISORDER [None]
  - NAUSEA [None]
  - VISION BLURRED [None]
